FAERS Safety Report 5117562-1 (Version None)
Quarter: 2006Q3

REPORT INFORMATION
  Report Type: 
  Country: None (occurrence: None)
  Receive Date: 20060926
  Receipt Date: 20060908
  Transmission Date: 20061208
  Serious: Yes (Hospitalization, Other)
  Sender: FDA-Public Use
  Company Number: US200602002454

PATIENT
  Sex: Female

DRUGS (3)
  1. INSULIN HUMAN (INSULIN HUMAN PROINSULIN 2 [Suspect]
     Indication: DIABETES MELLITUS
  2. INSULIN, ANIMAL (INSULIN, ANIMAL UNKNOWN FORMULATION) [Suspect]
     Indication: DIABETES MELLITUS
     Dosage: AS NEEDED
  3. INSULIN, ANIMAL (INSULIN, ANIMAL UNKNOWN FORMULATION) [Suspect]
     Indication: DIABETES MELLITUS
     Dosage: 48 U, 2/D

REACTIONS (3)
  - EYE HAEMORRHAGE [None]
  - GLYCOSYLATED HAEMOGLOBIN INCREASED [None]
  - UPPER LIMB FRACTURE [None]
